FAERS Safety Report 7600534-2 (Version None)
Quarter: 2011Q3

REPORT INFORMATION
  Report Type: 
  Country: None (occurrence: None)
  Receive Date: 20110706
  Receipt Date: 20110706
  Transmission Date: 20111222
  Serious: Yes (Hospitalization, Disabling, Other)
  Sender: FDA-Public Use
  Company Number: None

PATIENT
  Sex: Female
  Weight: 54.4316 kg

DRUGS (3)
  1. PSORIASIN OINTMENT [Suspect]
     Indication: PSORIASIS
     Dosage: USED ONLY ONCE 1 TIME
     Dates: start: 20110603
  2. PREDSONE [Concomitant]
  3. TRIAMCINOLONE ACETONIDE [Concomitant]

REACTIONS (1)
  - APPLICATION SITE BURN [None]
